FAERS Safety Report 6452954-X (Version None)
Quarter: 2009Q4

REPORT INFORMATION
  Report Type: 
  Country: None (occurrence: None)
  Receive Date: 20091124
  Receipt Date: 20091117
  Transmission Date: 20100525
  Serious: Yes (Other)
  Sender: FDA-Public Use
  Company Number: AU-PFIZER INC-2009290751

PATIENT
  Age: 67 Year
  Sex: Male
  Weight: 87 kg

DRUGS (4)
  1. LIPITOR [Suspect]
     Indication: HYPERCHOLESTEROLAEMIA
     Dosage: 40 MG, 1X/DAY NOCTE
     Route: 048
     Dates: start: 20060101, end: 20090101
  2. MICARDIS HCT [Concomitant]
     Indication: HYPERTENSION
     Dosage: 80MG/12.5MG ONCE DAILY
     Route: 048
     Dates: start: 20070101
  3. NEXIUM [Concomitant]
     Indication: GASTROOESOPHAGEAL REFLUX DISEASE
     Dosage: 20 MG, 1X/DAY
     Route: 048
     Dates: start: 20050101
  4. CARTIA XT [Concomitant]
     Indication: TRANSIENT ISCHAEMIC ATTACK
     Dosage: 100 MG, 1X/DAY
     Route: 048
     Dates: start: 20050101

REACTIONS (1)
  - DEAFNESS UNILATERAL [None]
